FAERS Safety Report 8239759-4 (Version None)
Quarter: 2012Q1

REPORT INFORMATION
  Report Type: 
  Country: None (occurrence: None)
  Receive Date: 20120328
  Receipt Date: 20120320
  Transmission Date: 20120608
  Serious: Yes (Congenital Anomaly)
  Sender: FDA-Public Use
  Company Number: FR-UCBSA-022159

PATIENT
  Sex: Male
  Weight: 2.68 kg

DRUGS (6)
  1. KEPPRA [Suspect]
     Indication: EPILEPSY
     Route: 064
     Dates: end: 20100501
  2. KEPPRA [Suspect]
     Route: 064
     Dates: start: 20100101
  3. DONORMYL [Suspect]
     Indication: POISONING DELIBERATE
     Route: 064
     Dates: start: 20100522, end: 20100522
  4. CIPROFLOXACIN HCL [Concomitant]
     Indication: POISONING DELIBERATE
     Dosage: 2 UNITS
     Route: 064
     Dates: start: 20100522, end: 20100522
  5. URBANYL [Suspect]
     Indication: EPILEPSY
     Route: 064
     Dates: end: 20100501
  6. DEPAKENE [Suspect]
     Indication: EPILEPSY
     Route: 064
     Dates: end: 20100501

REACTIONS (9)
  - ECHOGRAPHY ABNORMAL [None]
  - EXTERNAL AUDITORY CANAL ATRESIA [None]
  - DYSPLASIA [None]
  - WEIGHT DECREASED [None]
  - KIDNEY ENLARGEMENT [None]
  - FOETAL EXPOSURE DURING PREGNANCY [None]
  - METABOLIC ACIDOSIS [None]
  - ANOGENITAL WARTS [None]
  - HEARING IMPAIRED [None]
